FAERS Safety Report 11825448 (Version 1)
Quarter: 2015Q4

REPORT INFORMATION
  Report Type: Spontaneous
  Country: DE (occurrence: DE)
  Receive Date: 20151211
  Receipt Date: 20151211
  Transmission Date: 20160305
  Serious: Yes (Hospitalization, Disabling)
  Sender: FDA-Public Use
  Company Number: DE-SUN PHARMACEUTICAL INDUSTRIES LTD-2015RR-107613

PATIENT

DRUGS (4)
  1. ASPIRIN. [Concomitant]
     Active Substance: ASPIRIN
     Indication: CORONARY ARTERY DISEASE
     Dosage: 100 MG, UNK
     Route: 048
     Dates: start: 1995
  2. SIMVASTATIN. [Suspect]
     Active Substance: SIMVASTATIN
     Indication: TYPE IIA HYPERLIPIDAEMIA
     Dosage: 20 MG, UNK
     Route: 048
     Dates: start: 1995
  3. DEKRISTOL 20000 I.E. [Concomitant]
     Indication: VITAMIN D DEFICIENCY
     Dosage: 2 DF, MONTHLY
     Route: 048
     Dates: start: 2012
  4. FERMED [Concomitant]
     Indication: IRON DEFICIENCY ANAEMIA
     Dosage: 100 MG, 1/WEEK
     Route: 042
     Dates: start: 201505, end: 201507

REACTIONS (1)
  - Non-alcoholic steatohepatitis [Recovering/Resolving]

NARRATIVE: CASE EVENT DATE: 2013
